FAERS Safety Report 6752075-2 (Version None)
Quarter: 2010Q2

REPORT INFORMATION
  Report Type: 
  Country: None (occurrence: None)
  Receive Date: 20100602
  Receipt Date: 20100520
  Transmission Date: 20101027
  Serious: Yes (Hospitalization)
  Sender: FDA-Public Use
  Company Number: US-ELI_LILLY_AND_COMPANY-US201005006465

PATIENT
  Age: 87 Year
  Sex: Male

DRUGS (1)
  1. ALIMTA [Suspect]
     Indication: NON-SMALL CELL LUNG CANCER
     Dosage: 500 MG/M2, UNK
     Route: 042

REACTIONS (5)
  - DEHYDRATION [None]
  - DIZZINESS [None]
  - NAUSEA [None]
  - OFF LABEL USE [None]
  - PYREXIA [None]
